FAERS Safety Report 9781715 (Version 1)
Quarter: 2013Q4

REPORT INFORMATION
  Report Type: Spontaneous
  Country: US (occurrence: US)
  Receive Date: 20131224
  Receipt Date: 20131224
  Transmission Date: 20140711
  Serious: No
  Sender: FDA-Public Use
  Company Number: US-BAYER-2013-157014

PATIENT
  Age: 54 Year
  Sex: Female
  Weight: 61.22 kg

DRUGS (3)
  1. ALEVE TABLET [Suspect]
     Indication: ARTHRITIS
     Dosage: 1 DF, BID
     Route: 048
     Dates: start: 2012, end: 20131219
  2. ALEVE TABLET [Suspect]
     Indication: SPONDYLITIS
  3. VITAMIN B12 [COBAMAMIDE] [Concomitant]

REACTIONS (2)
  - Incorrect drug administration duration [None]
  - Extra dose administered [None]
